FAERS Safety Report 16928094 (Version 2)
Quarter: 2020Q1

REPORT INFORMATION
  Report Type: Other
  Country: DE (occurrence: DE)
  Receive Date: 20191017
  Receipt Date: 20200114
  Transmission Date: 20200409
  Serious: Yes (Hospitalization)
  Sender: FDA-Public Use
  Company Number: DE-CELLTRION INC.-2019DE025572

PATIENT

DRUGS (7)
  1. RITUXIMAB (UNKNOWN) [Suspect]
     Active Substance: RITUXIMAB
     Indication: RHEUMATOID ARTHRITIS
     Dosage: 1000 MG
     Route: 042
     Dates: start: 20190204
  2. OXYCODONE [Concomitant]
     Active Substance: OXYCODONE
  3. RAMIPRIL. [Concomitant]
     Active Substance: RAMIPRIL
  4. ASPIRIN. [Concomitant]
     Active Substance: ASPIRIN
  5. PREGABALIN. [Concomitant]
     Active Substance: PREGABALIN
  6. L-THYROXINE [LEVOTHYROXINE] [Concomitant]
     Active Substance: LEVOTHYROXINE
  7. ATOZET [Concomitant]
     Active Substance: ATORVASTATIN CALCIUM\EZETIMIBE

REACTIONS (2)
  - Post herpetic neuralgia [Not Recovered/Not Resolved]
  - Herpes zoster [Not Recovered/Not Resolved]

NARRATIVE: CASE EVENT DATE: 20190518
